FAERS Safety Report 4597424-9 (Version None)
Quarter: 2005Q1

REPORT INFORMATION
  Report Type: 
  Country: None (occurrence: None)
  Receive Date: 20050303
  Receipt Date: 20040715
  Transmission Date: 20050727
  Serious: Yes (Hospitalization)
  Sender: FDA-Public Use
  Company Number: PHBS2004BR09459

PATIENT
  Age: 21 Year
  Sex: Female
  Weight: 59 kg

DRUGS (1)
  1. TRILEPTAL [Suspect]
     Indication: CONVULSION
     Dosage: 600 MG/D
     Route: 048

REACTIONS (6)
  - CONVULSION [None]
  - DEPRESSION [None]
  - EMOTIONAL DISORDER [None]
  - INCREASED APPETITE [None]
  - MEMORY IMPAIRMENT [None]
  - WEIGHT INCREASED [None]
